FAERS Safety Report 5005194-5 (Version None)
Quarter: 2006Q2

REPORT INFORMATION
  Report Type: 
  Country: None (occurrence: None)
  Receive Date: 20060518
  Receipt Date: 20060512
  Transmission Date: 20061013
  Serious: Yes (Life-Threatening, Hospitalization)
  Sender: FDA-Public Use
  Company Number: 2006AC00918

PATIENT
  Age: 32 Year
  Sex: Female

DRUGS (1)
  1. CEFOTETAN [Suspect]
     Indication: CAESAREAN SECTION
     Route: 042

REACTIONS (4)
  - BLOOD IMMUNOGLOBULIN G INCREASED [None]
  - HAEMOLYSIS [None]
  - HYPERBILIRUBINAEMIA [None]
  - JAUNDICE [None]
